FAERS Safety Report 5751604-5 (Version None)
Quarter: 2008Q2

REPORT INFORMATION
  Report Type: 
  Country: None (occurrence: None)
  Receive Date: 20080528
  Receipt Date: 20080519
  Transmission Date: 20081010
  Serious: Yes (Life-Threatening, Hospitalization, Other)
  Sender: FDA-Public Use
  Company Number: PHHY2008JP06609

PATIENT
  Age: 79 Year
  Sex: Female
  Weight: 58 kg

DRUGS (3)
  1. ZOMETA [Suspect]
     Indication: METASTASES TO BONE
     Dosage: 4 MG, UNK
     Route: 042
     Dates: start: 20060501, end: 20080403
  2. AROMASIN [Concomitant]
     Indication: BREAST CANCER
     Dosage: 2.5 MG, UNK
     Dates: start: 20050101, end: 20080414
  3. NIVADIL [Concomitant]
     Indication: HYPERTENSION
     Dosage: 4 MG, UNK
     Route: 048
     Dates: end: 20080414

REACTIONS (20)
  - BLOOD CREATINE PHOSPHOKINASE INCREASED [None]
  - BODY TEMPERATURE DECREASED [None]
  - CYANOSIS [None]
  - ECHOCARDIOGRAM ABNORMAL [None]
  - ELECTROCARDIOGRAM T WAVE ABNORMAL [None]
  - HAEMATOCRIT DECREASED [None]
  - HYPERTENSION [None]
  - HYPOAESTHESIA [None]
  - HYPOCALCAEMIA [None]
  - HYPOKALAEMIA [None]
  - HYPOKINESIA [None]
  - INCONTINENCE [None]
  - LOSS OF CONSCIOUSNESS [None]
  - MUSCLE CONTRACTIONS INVOLUNTARY [None]
  - MUSCULAR WEAKNESS [None]
  - MYOPATHY [None]
  - PO2 DECREASED [None]
  - RED BLOOD CELL COUNT DECREASED [None]
  - RESPIRATORY ARREST [None]
  - WHITE BLOOD CELL COUNT INCREASED [None]
